FAERS Safety Report 8688417 (Version 3)
Quarter: 2012Q4

REPORT INFORMATION
  Report Type: Report from Study
  Country: US (occurrence: US)
  Receive Date: 20120727
  Receipt Date: 20121030
  Transmission Date: 20130627
  Serious: Yes (Hospitalization, Other)
  Sender: FDA-Public Use
  Company Number: US-ASTELLAS-2012US006420

PATIENT
  Age: 76 None
  Sex: Female
  Weight: 57 kg

DRUGS (10)
  1. ERLOTINIB TABLET [Suspect]
     Indication: NON-SMALL CELL LUNG CANCER
     Dosage: 100 mg, UID/QD
     Route: 048
     Dates: start: 201109, end: 201206
  2. ERLOTINIB TABLET [Suspect]
     Dosage: 100 mg, UID/QD
     Route: 048
     Dates: start: 201208
  3. PULMICORT [Concomitant]
     Indication: ASTHMA
     Dosage: 180 ug, Unknown/D
     Route: 065
     Dates: start: 1980
  4. THEOPHYLLINE [Concomitant]
     Indication: ASTHMA
     Dosage: 200 mg, UID/QD
     Route: 048
     Dates: start: 1980
  5. PANTOPRAZOLE [Concomitant]
     Indication: PRODUCT USED FOR UNKNOWN INDICATION
     Dosage: 40 mg, UID/QD
     Route: 048
     Dates: start: 2005
  6. MIRALAX                            /00754501/ [Concomitant]
     Indication: CONSTIPATION
     Dosage: UNK
     Route: 048
     Dates: start: 2007
  7. TYLENOL /00020001/ [Concomitant]
     Indication: PAIN
     Dosage: UNK
     Route: 048
  8. LORAZEPAM [Concomitant]
     Indication: ANXIETY
     Dosage: UNK
     Route: 065
     Dates: start: 2007
  9. MAALOX                             /00082501/ [Concomitant]
     Indication: DYSPEPSIA
     Dosage: UNK
     Route: 065
  10. IMODIUM [Concomitant]
     Indication: DIARRHOEA
     Dosage: UNK
     Route: 065

REACTIONS (16)
  - Incorrect dose administered [Unknown]
  - Blood pressure decreased [Not Recovered/Not Resolved]
  - Tremor [Not Recovered/Not Resolved]
  - Malignant neoplasm progression [Not Recovered/Not Resolved]
  - Heart rate increased [Not Recovered/Not Resolved]
  - Palpitations [Not Recovered/Not Resolved]
  - Diarrhoea [Not Recovered/Not Resolved]
  - Pain [Unknown]
  - Diarrhoea [Recovered/Resolved]
  - Acne [Recovered/Resolved]
  - Nervousness [Not Recovered/Not Resolved]
  - Palpitations [Unknown]
  - Dizziness [Unknown]
  - Dyspnoea [Unknown]
  - Constipation [Unknown]
  - Skin burning sensation [Unknown]
